FAERS Safety Report 9040797 (Version 2)
Quarter: 2013Q1

REPORT INFORMATION
  Report Type: Spontaneous
  Country: DO (occurrence: DO)
  Receive Date: 20130129
  Receipt Date: 20130221
  Transmission Date: 20140127
  Serious: Yes (Other)
  Sender: FDA-Public Use
  Company Number: DO-ABBOTT-13P-279-1040353-00

PATIENT
  Sex: Female

DRUGS (5)
  1. HUMIRA [Suspect]
     Indication: RHEUMATOID ARTHRITIS
     Route: 058
     Dates: start: 201206, end: 201212
  2. METHOTREXATE [Concomitant]
     Indication: RHEUMATOID ARTHRITIS
     Dates: start: 20120528
  3. CALCORT [Concomitant]
     Indication: RHEUMATOID ARTHRITIS
  4. ALFACORT [Concomitant]
     Indication: RHEUMATOID ARTHRITIS
  5. MYCOPHENOLATE [Concomitant]
     Indication: RHEUMATOID ARTHRITIS

REACTIONS (2)
  - T-cell lymphoma [Recovering/Resolving]
  - Pyrexia [Recovered/Resolved]
